FAERS Safety Report 14681629 (Version 4)
Quarter: 2019Q1

REPORT INFORMATION
  Report Type: Spontaneous
  Country: US (occurrence: US)
  Receive Date: 20180326
  Receipt Date: 20190220
  Transmission Date: 20190417
  Serious: Yes (Hospitalization, Other)
  Sender: FDA-Public Use
  Company Number: US-PFIZER INC-2018121342

PATIENT
  Age: 79 Year
  Sex: Female
  Weight: 80.74 kg

DRUGS (2)
  1. PRISTIQ EXTENDED-RELEASE [Suspect]
     Active Substance: DESVENLAFAXINE SUCCINATE
     Indication: INSOMNIA
     Dosage: 100 MG, 1X/DAY (AT NIGHT)
     Route: 048
  2. PRISTIQ EXTENDED-RELEASE [Suspect]
     Active Substance: DESVENLAFAXINE SUCCINATE
     Indication: DEPRESSION

REACTIONS (10)
  - Facial bones fracture [Unknown]
  - Fall [Unknown]
  - Hallucination [Recovered/Resolved]
  - Walking disability [Not Recovered/Not Resolved]
  - Concussion [Unknown]
  - Rib fracture [Unknown]
  - Nightmare [Not Recovered/Not Resolved]
  - Suicidal ideation [Unknown]
  - Multiple injuries [Unknown]
  - Morbid thoughts [Recovered/Resolved]

NARRATIVE: CASE EVENT DATE: 201807
